FAERS Safety Report 22742496 (Version 2)
Quarter: 2024Q1

REPORT INFORMATION
  Report Type: Spontaneous
  Country: CA (occurrence: CA)
  Receive Date: 20230724
  Receipt Date: 20240226
  Transmission Date: 20240410
  Serious: Yes (Other)
  Sender: FDA-Public Use
  Company Number: CA-SA-2023SA220682

PATIENT
  Age: 73 Year
  Sex: Female

DRUGS (8)
  1. DUPILUMAB [Suspect]
     Active Substance: DUPILUMAB
     Indication: Dermatitis atopic
     Dosage: 600 MG, 1X
     Route: 058
  2. DUPILUMAB [Suspect]
     Active Substance: DUPILUMAB
     Dosage: 300 MG, QW
     Route: 058
  3. PREDNISONE [Suspect]
     Active Substance: PREDNISONE
     Indication: Drug eruption
     Dosage: UNK
  4. BETAMETHASONE VALERATE [Suspect]
     Active Substance: BETAMETHASONE VALERATE
     Indication: Drug eruption
     Dosage: UNK (STRENGTH: 0.10%)
  5. ACITRETIN [Suspect]
     Active Substance: ACITRETIN
     Indication: Drug eruption
     Dosage: UNK
  6. TACROLIMUS [Suspect]
     Active Substance: TACROLIMUS
     Indication: Drug eruption
     Dosage: UNK, CAPSULE
  7. TACROLIMUS [Suspect]
     Active Substance: TACROLIMUS
     Dosage: UNK, OINTMENT OF STRENGTH 0.1 %
  8. ALITRETINOIN [Concomitant]
     Active Substance: ALITRETINOIN
     Indication: Drug eruption
     Dosage: UNK

REACTIONS (2)
  - Drug eruption [Recovered/Resolved]
  - Drug ineffective [Unknown]
